FAERS Safety Report 5364198-3 (Version None)
Quarter: 2007Q2

REPORT INFORMATION
  Report Type: 
  Country: None (occurrence: None)
  Receive Date: 20070620
  Receipt Date: 20070608
  Transmission Date: 20071010
  Serious: Yes (Other)
  Sender: FDA-Public Use
  Company Number: BR-PFIZER INC-2007048958

PATIENT
  Age: 43 Year
  Sex: Male

DRUGS (4)
  1. VIRACEPT [Suspect]
     Indication: ACQUIRED IMMUNODEFICIENCY SYNDROME
     Dosage: DAILY DOSE:2.5GRAM
     Route: 048
  2. EPIVIR [Concomitant]
  3. STAVUDINE [Concomitant]
  4. VIREAD [Concomitant]

REACTIONS (5)
  - EJACULATION DISORDER [None]
  - HORMONE LEVEL ABNORMAL [None]
  - LOSS OF LIBIDO [None]
  - ORCHITIS [None]
  - SEMEN VISCOSITY DECREASED [None]
